FAERS Safety Report 6158779-7 (Version None)
Quarter: 2009Q2

REPORT INFORMATION
  Report Type: 
  Country: None (occurrence: None)
  Receive Date: 20090417
  Receipt Date: 20090409
  Transmission Date: 20091009
  Serious: Yes (Hospitalization)
  Sender: FDA-Public Use
  Company Number: B0570314A

PATIENT
  Sex: Female

DRUGS (10)
  1. ZOFRAN [Suspect]
     Indication: PROPHYLAXIS
     Route: 042
     Dates: start: 20081028, end: 20081028
  2. GEMZAR [Suspect]
     Indication: PANCREATIC CARCINOMA
     Route: 040
     Dates: start: 20081028, end: 20081028
  3. XELODA [Suspect]
     Indication: PANCREATIC CARCINOMA
     Dosage: 1000MG TWICE PER DAY
     Route: 048
     Dates: start: 20081028, end: 20081030
  4. MOTILIUM [Suspect]
     Indication: PROPHYLAXIS
     Dosage: 10MG TWICE PER DAY
     Route: 048
     Dates: start: 20081028, end: 20081028
  5. FORTECORTIN [Concomitant]
     Route: 048
     Dates: start: 20081028, end: 20081030
  6. ADALAT [Concomitant]
     Dosage: 20MG TWICE PER DAY
     Route: 048
  7. NEXIUM [Concomitant]
     Dosage: 40MG PER DAY
  8. POLYETHYLENE GLYCOL 3350 AND ELECTOLYTES [Concomitant]
     Route: 048
     Dates: start: 20081028
  9. PASPERTIN [Concomitant]
     Dosage: 10MG TWICE PER DAY
     Route: 048
  10. TRAMADOL HCL [Concomitant]
     Dosage: 100MG TWICE PER DAY
     Route: 048

REACTIONS (5)
  - CHILLS [None]
  - HEADACHE [None]
  - INFLUENZA LIKE ILLNESS [None]
  - NAUSEA [None]
  - VOMITING [None]
